FAERS Safety Report 6529410-3 (Version None)
Quarter: 2009Q4

REPORT INFORMATION
  Report Type: 
  Country: None (occurrence: None)
  Receive Date: 20091231
  Receipt Date: 20091217
  Transmission Date: 20100525
  Serious: Yes (Other)
  Sender: FDA-Public Use
  Company Number: 2009AL007865

PATIENT
  Age: 32 Year
  Sex: Male

DRUGS (3)
  1. ACETAMINOPHEN AND CODEINE PHOSPHATE [Suspect]
  2. CLOZARIL [Concomitant]
  3. METHADONE [Concomitant]

REACTIONS (1)
  - FALL [None]
